FAERS Safety Report 4507218-8 (Version None)
Quarter: 2005Q1

REPORT INFORMATION
  Report Type: 
  Country: None (occurrence: None)
  Receive Date: 20041025
  Receipt Date: 20040520
  Transmission Date: 20050727
  Serious: Yes (Other)
  Sender: FDA-Public Use
  Company Number: US-JNJFOC-20040505267

PATIENT
  Age: 54 Year
  Sex: Female
  Weight: 61.2356 kg

DRUGS (10)
  1. INFLIXIMAB  (INFLIXIMAB, RECOMBINANT) LYOPHILIZED POWDER [Suspect]
     Indication: RHEUMATOID ARTHRITIS
     Dosage: 300 MG, INTRAVENOUS
     Route: 042
     Dates: start: 20020919, end: 20030918
  2. HYDROCHLOROTHIAZIDE [Concomitant]
  3. MULTIVITAMIN (MULTIVITAMINS) [Concomitant]
  4. BEXTRA [Concomitant]
  5. PLAQUENIL I(HYDROXYCHLOROQUINE PHOSPHATE [Concomitant]
  6. TUMS (CALCIUM CARBONATE) [Concomitant]
  7. ZANTAC [Concomitant]
  8. ACTONEL [Concomitant]
  9. TYLENOL PM (TYLENOL PM) [Concomitant]
  10. BENADRYL [Concomitant]

REACTIONS (1)
  - INFUSION RELATED REACTION [None]
